FAERS Safety Report 22007915 (Version 1)
Quarter: 2023Q1

REPORT INFORMATION
  Report Type: Report from Study
  Country: US (occurrence: US)
  Receive Date: 20230218
  Receipt Date: 20230218
  Transmission Date: 20230417
  Serious: Yes (Other)
  Sender: FDA-Public Use
  Company Number: US-002147023-NVSC2023US034130

PATIENT
  Sex: Male

DRUGS (1)
  1. ENTRESTO [Suspect]
     Active Substance: SACUBITRIL\VALSARTAN
     Indication: Product used for unknown indication
     Dosage: 0.5 DOSAGE FORM (24/26 MG TAKE 1/2 TAB), BID
     Route: 048

REACTIONS (3)
  - Renal impairment [Unknown]
  - Prescribed underdose [Unknown]
  - Wrong technique in product usage process [Unknown]
